FAERS Safety Report 8791394 (Version 1)
Quarter: 2012Q4

REPORT INFORMATION
  Report Type: Spontaneous
  Country: US (occurrence: None)
  Receive Date: 20120914
  Receipt Date: 20120914
  Transmission Date: 20130627
  Serious: Yes (Disabling)
  Sender: FDA-Public Use
  Company Number: None

PATIENT
  Age: 68 Year
  Sex: Female
  Weight: 64.86 kg

DRUGS (1)
  1. CIMZIA [Suspect]
     Indication: RHEUMATOID ARTHRITIS
     Dosage: 200 mg. every 2 weeks  cooling pkg.
     Dates: start: 20120518, end: 20120809

REACTIONS (4)
  - Balance disorder [None]
  - Fall [None]
  - Muscular weakness [None]
  - Gait disturbance [None]
